FAERS Safety Report 6273814-3 (Version None)
Quarter: 2009Q3

REPORT INFORMATION
  Report Type: 
  Country: None (occurrence: None)
  Receive Date: 20090720
  Receipt Date: 20090625
  Transmission Date: 20100115
  Serious: Yes (Other)
  Sender: FDA-Public Use
  Company Number: D0059469A

PATIENT
  Sex: Female

DRUGS (3)
  1. VIANI [Suspect]
     Indication: ASTHMA
     Dosage: 600MCG TWICE PER DAY
     Route: 055
     Dates: start: 20081029, end: 20081110
  2. SYMBICORT [Concomitant]
     Indication: ASTHMA
     Dosage: 329MCG TWICE PER DAY
     Route: 055
  3. TILIDINE/NALOXONE [Concomitant]
     Route: 048

REACTIONS (4)
  - ASTHMA [None]
  - DYSPNOEA [None]
  - MUSCLE SPASMS [None]
  - OVERDOSE [None]
